FAERS Safety Report 4951041-7 (Version None)
Quarter: 2006Q1

REPORT INFORMATION
  Report Type: 
  Country: None (occurrence: None)
  Receive Date: 20060322
  Receipt Date: 20050414
  Transmission Date: 20060701
  Serious: Yes (Other)
  Sender: FDA-Public Use
  Company Number: US-MERCK-0504USA02792

PATIENT
  Age: 54 Year
  Sex: Female
  Weight: 68 kg

DRUGS (5)
  1. VIOXX [Suspect]
     Indication: ARTHRITIS
     Route: 048
     Dates: start: 20020101, end: 20040801
  2. PROZAC [Concomitant]
     Route: 065
  3. ELAVIL [Concomitant]
     Route: 065
  4. PREMPRO [Concomitant]
     Route: 065
  5. ACIPHEX [Concomitant]
     Route: 065

REACTIONS (2)
  - HYPOAESTHESIA [None]
  - RENAL FAILURE CHRONIC [None]
